FAERS Safety Report 7824670-0 (Version None)
Quarter: 2011Q4

REPORT INFORMATION
  Report Type: 
  Country: None (occurrence: None)
  Receive Date: 20111019
  Receipt Date: 20111007
  Transmission Date: 20120403
  Serious: Yes (Hospitalization)
  Sender: FDA-Public Use
  Company Number: PHHY2011FR89487

PATIENT
  Sex: Female
  Weight: 70 kg

DRUGS (8)
  1. GLEEVEC [Suspect]
     Dosage: 400 MG, DAILY
     Dates: start: 20110101
  2. GLEEVEC [Suspect]
     Dosage: 200 MG, DAILY
     Dates: start: 20110301, end: 20111001
  3. PREDNISONE [Concomitant]
     Indication: HYPERSENSITIVITY
  4. COLCHICINE [Concomitant]
     Indication: GOUT
  5. DEDROGYL [Concomitant]
  6. LASIX [Concomitant]
     Indication: RASH
  7. CALCIUM CARBONATE [Concomitant]
  8. ALLOPURINOL [Concomitant]

REACTIONS (6)
  - OEDEMA [None]
  - ACCIDENT [None]
  - GINGIVITIS [None]
  - HEAD INJURY [None]
  - CONTUSION [None]
  - HAEMORRHAGE [None]
